FAERS Safety Report 7648844-7 (Version None)
Quarter: 2011Q3

REPORT INFORMATION
  Report Type: 
  Country: None (occurrence: None)
  Receive Date: 20110801
  Receipt Date: 20110727
  Transmission Date: 20111222
  Serious: Yes (Death, Other)
  Sender: FDA-Public Use
  Company Number: PHHY2011PL67674

PATIENT
  Age: 10 Year
  Sex: Female

DRUGS (5)
  1. TACROLIMUS [Suspect]
     Indication: GRAFT VERSUS HOST DISEASE
     Dosage: 4 MG DAILY
  2. METHYLPREDNISOLONE [Concomitant]
     Dosage: 1 MG/KG/DAY
  3. CYCLOSPORINE [Suspect]
     Indication: ACUTE GRAFT VERSUS HOST DISEASE
     Dosage: UNK
  4. MYCOPHENOLATE MOFETIL [Concomitant]
     Dosage: UNK
  5. GLUCOCORTICOIDS [Concomitant]
     Dosage: UNK

REACTIONS (7)
  - CEREBROVASCULAR INSUFFICIENCY [None]
  - PARTIAL SEIZURES [None]
  - ACUTE GRAFT VERSUS HOST DISEASE IN SKIN [None]
  - DYSKINESIA [None]
  - LEUKOENCEPHALOPATHY [None]
  - CHOREOATHETOSIS [None]
  - DRUG INEFFECTIVE [None]
